FAERS Safety Report 4512337-6 (Version None)
Quarter: 2004Q4

REPORT INFORMATION
  Report Type: 
  Country: None (occurrence: None)
  Receive Date: 20041129
  Receipt Date: 20041115
  Transmission Date: 20050328
  Serious: Yes (Hospitalization)
  Sender: FDA-Public Use
  Company Number: ES-GLAXOSMITHKLINE-B0358070A

PATIENT
  Age: 75 Year
  Sex: Male

DRUGS (2)
  1. AUGMENTIN '125' [Suspect]
     Route: 048
     Dates: start: 20040815, end: 20040830
  2. EXELON [Suspect]
     Route: 048
     Dates: start: 20040901, end: 20040915

REACTIONS (5)
  - ALANINE AMINOTRANSFERASE INCREASED [None]
  - ASPARTATE AMINOTRANSFERASE INCREASED [None]
  - GAMMA-GLUTAMYLTRANSFERASE INCREASED [None]
  - HEPATITIS CHOLESTATIC [None]
  - PROTHROMBIN TIME PROLONGED [None]
